FAERS Safety Report 6674925-0 (Version None)
Quarter: 2010Q2

REPORT INFORMATION
  Report Type: 
  Country: None (occurrence: None)
  Receive Date: 20100409
  Receipt Date: 20100405
  Transmission Date: 20101027
  Serious: Yes (Death)
  Sender: FDA-Public Use
  Company Number: US-CELGENEUS-163-21880-10040273

PATIENT
  Sex: Female

DRUGS (2)
  1. REVLIMID [Suspect]
     Route: 048
     Dates: start: 20080901
  2. REVLIMID [Suspect]
     Route: 048
     Dates: start: 20080101

REACTIONS (2)
  - BLOOD COUNT ABNORMAL [None]
  - DEATH [None]
